FAERS Safety Report 5819754-2 (Version None)
Quarter: 2008Q3

REPORT INFORMATION
  Report Type: 
  Country: None (occurrence: None)
  Receive Date: 20080723
  Receipt Date: 20080714
  Transmission Date: 20090109
  Serious: Yes (Other)
  Sender: FDA-Public Use
  Company Number: SE-PFIZER INC-2008058198

PATIENT
  Sex: Male

DRUGS (5)
  1. LIPITOR [Suspect]
     Indication: HYPERCHOLESTEROLAEMIA
     Dosage: DAILY DOSE:10MG-TEXT:DAILY
     Dates: start: 20030101, end: 20080111
  2. LIPITOR [Suspect]
     Indication: HEART VALVE STENOSIS
  3. METOPROLOL TARTRATE [Concomitant]
  4. EZETROL [Concomitant]
  5. ASPIRIN [Concomitant]

REACTIONS (1)
  - AMYOTROPHIC LATERAL SCLEROSIS [None]
